FAERS Safety Report 9009369 (Version 1)
Quarter: 2013Q1

REPORT INFORMATION
  Report Type: Spontaneous
  Country: US (occurrence: US)
  Receive Date: 20130111
  Receipt Date: 20130111
  Transmission Date: 20140127
  Serious: Yes (Other)
  Sender: FDA-Public Use
  Company Number: US-PFIZER INC-2013011215

PATIENT
  Sex: Female

DRUGS (1)
  1. XALATAN [Suspect]
     Dosage: UNK

REACTIONS (3)
  - Ocular vascular disorder [Unknown]
  - Retinal haemorrhage [Unknown]
  - Visual acuity reduced [Unknown]
